FAERS Safety Report 4586847-X (Version None)
Quarter: 2005Q1

REPORT INFORMATION
  Report Type: 
  Country: None (occurrence: None)
  Receive Date: 20050218
  Receipt Date: 20050210
  Transmission Date: 20050727
  Serious: Yes (Other)
  Sender: FDA-Public Use
  Company Number: US-BRISTOL-MYERS SQUIBB COMPANY-12859138

PATIENT
  Sex: Male

DRUGS (7)
  1. CYTOXAN [Suspect]
     Route: 042
     Dates: start: 20041108, end: 20041108
  2. VINCRISTINE SULFATE [Suspect]
     Route: 042
     Dates: start: 20041108, end: 20041108
  3. DOXORUBICIN HCL [Suspect]
     Route: 042
     Dates: start: 20041108, end: 20041108
  4. ANZEMET [Concomitant]
     Route: 042
     Dates: start: 20041108
  5. DECADRON [Concomitant]
     Route: 042
     Dates: start: 20041108
  6. NEULASTA [Concomitant]
     Route: 058
     Dates: start: 20041108
  7. INSULIN [Concomitant]
     Indication: DIABETES MELLITUS

REACTIONS (1)
  - SKIN LESION [None]
